FAERS Safety Report 21409939 (Version 1)
Quarter: 2022Q4

REPORT INFORMATION
  Report Type: Spontaneous
  Country: US (occurrence: US)
  Receive Date: 20221005
  Receipt Date: 20221005
  Transmission Date: 20230113
  Serious: Yes (Hospitalization)
  Sender: FDA-Public Use
  Company Number: US-drreddys-LIT/USA/22/0155444

PATIENT
  Age: 35 Year
  Sex: Male

DRUGS (3)
  1. ZOLPIDEM [Suspect]
     Active Substance: ZOLPIDEM TARTRATE
     Indication: Sleep disorder
     Dosage: AS NEEDED
  2. LORAZEPAM [Suspect]
     Active Substance: LORAZEPAM
     Indication: Anxiety
  3. CLOZAPINE [Suspect]
     Active Substance: CLOZAPINE
     Indication: Suicidal ideation

REACTIONS (4)
  - Tachyphrenia [Unknown]
  - Agitation [Unknown]
  - Therapy partial responder [Unknown]
  - Drug ineffective [Unknown]
